FAERS Safety Report 5719626-8 (Version None)
Quarter: 2008Q2

REPORT INFORMATION
  Report Type: 
  Country: None (occurrence: None)
  Receive Date: 20080428
  Receipt Date: 20080417
  Transmission Date: 20081010
  Serious: Yes (Hospitalization)
  Sender: FDA-Public Use
  Company Number: US-JNJFOC-20080405402

PATIENT
  Sex: Female
  Weight: 126.1 kg

DRUGS (7)
  1. DURAGESIC-100 [Suspect]
     Route: 062
  2. DURAGESIC-100 [Suspect]
     Indication: BACK PAIN
     Dosage: TWO 100 UG/HR PATCHES
     Route: 062
  3. FENTANYL TRANSDERMAL SYSTEM [Suspect]
     Indication: BACK PAIN
     Dosage: 100UG/HR AND 75 UG/HR PATCH
     Route: 062
  4. TOPAMAX [Concomitant]
     Indication: ANXIETY
     Route: 048
  5. ATIVAN [Concomitant]
     Indication: ANXIETY
     Route: 048
  6. PLAVIX [Concomitant]
     Indication: COAGULOPATHY
     Route: 048
  7. ASPIRIN [Concomitant]
     Indication: PAIN
     Route: 048

REACTIONS (5)
  - BACK PAIN [None]
  - DRUG INEFFECTIVE [None]
  - INCORRECT DRUG ADMINISTRATION DURATION [None]
  - MENOPAUSAL SYMPTOMS [None]
  - THROMBOSIS [None]
